FAERS Safety Report 25861299 (Version 1)
Quarter: 2025Q3

REPORT INFORMATION
  Report Type: Spontaneous
  Country: TW (occurrence: TW)
  Receive Date: 20250929
  Receipt Date: 20250929
  Transmission Date: 20251021
  Serious: Yes (Other)
  Sender: KOWA PHARM
  Company Number: TW-KOWA-25JP002430AA

PATIENT
  Age: 62 Year
  Sex: Female
  Weight: 51.7 kg

DRUGS (25)
  1. LIVALO [Suspect]
     Active Substance: PITAVASTATIN CALCIUM
     Indication: Hyperlipidaemia
     Route: 048
     Dates: start: 20250509, end: 20250522
  2. CARBIMAZOLE [Suspect]
     Active Substance: CARBIMAZOLE
     Indication: Hyperthyroidism
     Route: 048
     Dates: start: 20250513, end: 20250523
  3. AVIBACTAM SODIUM\CEFTAZIDIME [Suspect]
     Active Substance: AVIBACTAM SODIUM\CEFTAZIDIME
     Indication: Pneumonia
     Route: 048
     Dates: start: 20250516, end: 20250522
  4. AMIODARONE HYDROCHLORIDE [Suspect]
     Active Substance: AMIODARONE HYDROCHLORIDE
     Indication: Atrial fibrillation
     Route: 048
     Dates: start: 20250512, end: 20250522
  5. ACETAMINOPHEN [Concomitant]
     Active Substance: ACETAMINOPHEN
     Indication: Pyrexia
     Route: 048
     Dates: start: 20250509, end: 20250602
  6. CHLORHEXIDINE GLUCONATE [Concomitant]
     Active Substance: CHLORHEXIDINE GLUCONATE
     Indication: Infection prophylaxis
     Dosage: 10 ML, TID
     Dates: start: 20250509, end: 20250621
  7. DEXLANSOPRAZOLE [Concomitant]
     Active Substance: DEXLANSOPRAZOLE
     Indication: Gastrooesophageal reflux disease
     Dosage: 60 MG, QD
     Route: 048
     Dates: start: 20250509
  8. DIPHENHYDRAMINE HYDROCHLORIDE [Concomitant]
     Active Substance: DIPHENHYDRAMINE HYDROCHLORIDE
     Indication: Prophylaxis
     Route: 065
     Dates: start: 20250509
  9. THALIDOMIDE [Concomitant]
     Active Substance: THALIDOMIDE
     Indication: Plasma cell myeloma
     Dosage: 100 MG, QD
     Route: 048
     Dates: start: 20250510
  10. DOXAZOSIN MESYLATE [Concomitant]
     Active Substance: DOXAZOSIN MESYLATE
     Indication: Hypertension
     Dosage: 2.43 MG, BID
     Route: 048
     Dates: start: 20250513, end: 20250517
  11. AMBROXOL HYDROCHLORIDE [Concomitant]
     Active Substance: AMBROXOL HYDROCHLORIDE
     Indication: Mucolytic treatment
     Dosage: 30 MG, TID
     Route: 048
     Dates: start: 20250511, end: 20250521
  12. BISACODYL [Concomitant]
     Active Substance: BISACODYL
     Indication: Constipation
     Route: 054
     Dates: start: 20250512, end: 20250619
  13. ENTECAVIR [Concomitant]
     Active Substance: ENTECAVIR
     Indication: Antiviral prophylaxis
     Dosage: 0.53 MG, 1ID3
     Route: 048
     Dates: start: 20250512, end: 20250526
  14. SENNOSIDES A AND B [Concomitant]
     Active Substance: SENNOSIDES A AND B
     Indication: Constipation
     Dosage: 12.5 MG, QD
     Route: 048
     Dates: start: 20250512, end: 20250529
  15. VALACYCLOVIR HYDROCHLORIDE [Concomitant]
     Active Substance: VALACYCLOVIR HYDROCHLORIDE
     Indication: Prophylaxis
     Dosage: 556 MG, QOD
     Route: 048
     Dates: start: 20250513, end: 20250627
  16. BORTEZOMIB [Concomitant]
     Active Substance: BORTEZOMIB
     Indication: Plasma cell myeloma
     Dosage: 2.1 MG, QD
     Route: 065
     Dates: start: 20250513
  17. MORPHINE HYDROCHLORIDE [Concomitant]
     Active Substance: MORPHINE HYDROCHLORIDE
     Indication: Pain prophylaxis
     Route: 065
     Dates: start: 20250513, end: 20250518
  18. ALPRAZOLAM [Concomitant]
     Active Substance: ALPRAZOLAM
     Indication: Anxiety
     Dosage: 0.25 MG, QD
     Route: 048
     Dates: start: 20250513, end: 20250517
  19. AMLODIPINE BESYLATE [Concomitant]
     Active Substance: AMLODIPINE BESYLATE
     Indication: Hypertension
     Dosage: 6.94 MG, QD
     Route: 048
     Dates: start: 20250514, end: 20250517
  20. BISOPROLOL FUMARATE [Concomitant]
     Active Substance: BISOPROLOL FUMARATE
     Indication: Tachycardia
     Dosage: 1.25 MG, QD
     Route: 065
     Dates: start: 20250514, end: 20250517
  21. IPRATROPIUM BROMIDE [Concomitant]
     Active Substance: IPRATROPIUM BROMIDE
     Indication: Bronchial disorder
     Dosage: 0.52 MG, QID
     Dates: start: 20250515, end: 20250521
  22. MESNA [Concomitant]
     Active Substance: MESNA
     Indication: Mucolytic treatment
     Dosage: 200 MG, QID
     Dates: start: 20250515, end: 20250521
  23. SODIUM BICARBONATE [Concomitant]
     Active Substance: SODIUM BICARBONATE
     Indication: Metabolic acidosis
     Dosage: 600 MG, TID
     Route: 048
     Dates: start: 20250516, end: 20250518
  24. MORPHINE SULFATE [Concomitant]
     Active Substance: MORPHINE SULFATE
     Indication: Pain prophylaxis
     Dosage: 6 MG, 6ID
     Dates: start: 20250516, end: 20250519
  25. METOCLOPRAMIDE [Concomitant]
     Active Substance: METOCLOPRAMIDE
     Indication: Gastrointestinal motility disorder
     Dosage: 5 MG, TID
     Route: 065
     Dates: start: 20250517, end: 20250611

REACTIONS (3)
  - Rash maculo-papular [Recovered/Resolved]
  - Eosinophil count increased [Recovered/Resolved]
  - Hepatic enzyme increased [Recovered/Resolved]

NARRATIVE: CASE EVENT DATE: 20250517
